FAERS Safety Report 6913650-5 (Version None)
Quarter: 2010Q3

REPORT INFORMATION
  Report Type: 
  Country: None (occurrence: None)
  Receive Date: 20100803
  Receipt Date: 20100721
  Transmission Date: 20110219
  Serious: Yes (Death)
  Sender: FDA-Public Use
  Company Number: 010496

PATIENT
  Age: 52 Year
  Sex: Male

DRUGS (2)
  1. SAMSCA [Suspect]
     Indication: HYPONATRAEMIA
  2. SAMSCA [Suspect]
     Indication: INAPPROPRIATE ANTIDIURETIC HORMONE SECRETION

REACTIONS (3)
  - MALIGNANT NEOPLASM PROGRESSION [None]
  - NO THERAPEUTIC RESPONSE [None]
  - SMALL CELL LUNG CANCER STAGE UNSPECIFIED [None]
